FAERS Safety Report 24304192 (Version 1)
Quarter: 2024Q3

REPORT INFORMATION
  Report Type: Spontaneous
  Country: US (occurrence: US)
  Receive Date: 20240910
  Receipt Date: 20240910
  Transmission Date: 20241017
  Serious: No
  Sender: BRISTOL MYERS SQUIBB
  Company Number: US-BRISTOL-MYERS SQUIBB COMPANY-2024-143371

PATIENT
  Age: 50 Year
  Sex: Male

DRUGS (2)
  1. ELIQUIS [Suspect]
     Active Substance: APIXABAN
     Indication: Pulmonary embolism
     Dosage: FOR FIRST SEVEN DAYS
  2. ELIQUIS [Suspect]
     Active Substance: APIXABAN

REACTIONS (4)
  - Hypoaesthesia [Unknown]
  - Muscle fatigue [Unknown]
  - Paraesthesia [Unknown]
  - Emergency care [Unknown]
